FAERS Safety Report 9394387 (Version 2)
Quarter: 2013Q3

REPORT INFORMATION
  Report Type: Spontaneous
  Country: CA (occurrence: CA)
  Receive Date: 20130711
  Receipt Date: 20130720
  Transmission Date: 20140515
  Serious: Yes (Other)
  Sender: FDA-Public Use
  Company Number: CA-AMGEN-CANSP2013047951

PATIENT
  Age: 40 Year
  Sex: Female
  Weight: 64 kg

DRUGS (5)
  1. AVALOX [Suspect]
     Indication: BRONCHITIS
     Dosage: 400 UNK, BID
     Route: 048
     Dates: start: 20130627, end: 20130703
  2. VINORELBINE [Concomitant]
     Indication: BREAST CANCER
     Dosage: UNK 2/3 WEEKS
     Route: 042
     Dates: start: 2011
  3. LUPRON DEPOT [Concomitant]
     Indication: BREAST CANCER
     Dosage: UNK UNK, QMO
     Route: 030
     Dates: start: 2008
  4. XGEVA [Suspect]
     Indication: METASTASES TO BONE
     Dosage: 120 MG, QMO
     Route: 058
     Dates: start: 20120121
  5. XGEVA [Suspect]
     Indication: BREAST CANCER

REACTIONS (2)
  - Corneal cyst [Unknown]
  - Vision blurred [Unknown]
